FAERS Safety Report 5792863-2 (Version None)
Quarter: 2008Q2

REPORT INFORMATION
  Report Type: 
  Country: None (occurrence: None)
  Receive Date: 20080627
  Receipt Date: 20080623
  Transmission Date: 20081010
  Serious: Yes (Hospitalization, Disabling, Other)
  Sender: FDA-Public Use
  Company Number: PH-BAYER-200820959GPV

PATIENT
  Age: 43 Year
  Sex: Female

DRUGS (1)
  1. ULTRAVIST (PHARMACY BULK) [Suspect]
     Indication: UROGRAM
     Dosage: AS USED: 5 ML
     Route: 042
     Dates: start: 20080613, end: 20080613

REACTIONS (3)
  - CHEST PAIN [None]
  - DYSKINESIA [None]
  - HEADACHE [None]
